FAERS Safety Report 12829052 (Version 1)
Quarter: 2016Q4

REPORT INFORMATION
  Report Type: Spontaneous
  Country: US (occurrence: US)
  Receive Date: 20161007
  Receipt Date: 20161007
  Transmission Date: 20170207
  Serious: No
  Sender: FDA-Public Use
  Company Number: US-SA-2016SA042826

PATIENT
  Sex: Female

DRUGS (15)
  1. OXYCODONE [Concomitant]
     Active Substance: OXYCODONE
     Dosage: 15 MG
  2. OXYCONTIN [Concomitant]
     Active Substance: OXYCODONE HYDROCHLORIDE
     Dosage: 20 MG CR
  3. PIOGLITAZONE. [Concomitant]
     Active Substance: PIOGLITAZONE
     Dosage: AB 30 MG
  4. NITROFUR MAC [Concomitant]
     Active Substance: NITROFURANTOIN
     Dosage: 100 MG
  5. RESTASIS [Concomitant]
     Active Substance: CYCLOSPORINE
     Dosage: EMU 0.05%
  6. VICTOZA [Concomitant]
     Active Substance: LIRAGLUTIDE
     Dosage: 18MG/3ML
  7. PROMETHAZINE HYDROCHLORIDE. [Concomitant]
     Active Substance: PROMETHAZINE HYDROCHLORIDE
  8. BACTRIM DS [Concomitant]
     Active Substance: SULFAMETHOXAZOLE\TRIMETHOPRIM
     Dosage: 800-160
  9. GLIMEPIRIDE. [Concomitant]
     Active Substance: GLIMEPIRIDE
     Dosage: 4 MG
  10. KLOR-CON [Concomitant]
     Active Substance: POTASSIUM CHLORIDE
     Dosage: 10 MEQ ER
  11. LOVASTATIN. [Concomitant]
     Active Substance: LOVASTATIN
     Dosage: 20 MG
  12. AUBAGIO [Suspect]
     Active Substance: TERIFLUNOMIDE
     Indication: MULTIPLE SCLEROSIS
     Route: 048
  13. PILOCARPINE. [Concomitant]
     Active Substance: PILOCARPINE
     Dosage: 5 MG
  14. FUROSEMIDE. [Concomitant]
     Active Substance: FUROSEMIDE
     Dosage: 40 MG
  15. SYNTHROID [Concomitant]
     Active Substance: LEVOTHYROXINE SODIUM
     Dosage: 137 MCG

REACTIONS (2)
  - Stomatitis [Unknown]
  - Infection [Unknown]
